FAERS Safety Report 7145803-8 (Version None)
Quarter: 2010Q4

REPORT INFORMATION
  Report Type: 
  Country: None (occurrence: None)
  Receive Date: 20101208
  Receipt Date: 20101206
  Transmission Date: 20110411
  Serious: Yes (Life-Threatening, Disabling)
  Sender: FDA-Public Use
  Company Number: A0897983A

PATIENT
  Sex: Male

DRUGS (8)
  1. CARVEDILOL [Suspect]
     Dosage: 25MG TWICE PER DAY
     Route: 048
     Dates: start: 20030101, end: 20090101
  2. DIGITEK [Concomitant]
  3. LIPITOR [Concomitant]
  4. HUMULIN R [Concomitant]
  5. TRICOR [Concomitant]
  6. AMLODIPINE [Concomitant]
  7. WARFARIN SODIUM [Concomitant]
  8. ALTACE [Concomitant]

REACTIONS (6)
  - ANGINA PECTORIS [None]
  - CHEST PAIN [None]
  - EPISTAXIS [None]
  - OEDEMA [None]
  - PALPITATIONS [None]
  - VERTIGO [None]
